FAERS Safety Report 7400246-4 (Version None)
Quarter: 2011Q2

REPORT INFORMATION
  Report Type: 
  Country: None (occurrence: None)
  Receive Date: 20110407
  Receipt Date: 20110330
  Transmission Date: 20111010
  Serious: Yes (Hospitalization)
  Sender: FDA-Public Use
  Company Number: JP-ACTELION-A-CH2010-40031

PATIENT
  Sex: Female
  Weight: 63 kg

DRUGS (13)
  1. LAFUTIDINE [Concomitant]
  2. BROTIZOLAM [Concomitant]
  3. SENNOSIDE [Concomitant]
  4. TRACLEER [Suspect]
     Indication: PULMONARY ARTERIAL HYPERTENSION
     Dosage: 125 MG, BID
     Route: 048
     Dates: start: 20071114
  5. SARPOGRELATE HYDROCHLORIDE [Concomitant]
  6. ECABET MONOSODIUM [Concomitant]
  7. TRACLEER [Suspect]
     Dosage: 62.5 MG, BID
     Route: 048
     Dates: start: 20070706, end: 20071113
  8. BERAPROST SODIUM [Concomitant]
  9. ALENDRONATE SODIUM [Concomitant]
  10. ALFACALCIDOL [Concomitant]
  11. SENNA LEAF [Concomitant]
  12. PREDNISOLONE [Concomitant]
  13. SENNA FRUIT [Concomitant]

REACTIONS (1)
  - SYSTEMIC LUPUS ERYTHEMATOSUS [None]
